FAERS Safety Report 8619994 (Version 2)
Quarter: 2013Q2

REPORT INFORMATION
  Report Type: Spontaneous
  Country: US (occurrence: US)
  Receive Date: 20120618
  Receipt Date: 20130425
  Transmission Date: 20140414
  Serious: No
  Sender: FDA-Public Use
  Company Number: US-ASTRAZENECA-2012SE22143

PATIENT
  Age: 55 Year
  Sex: Female

DRUGS (1)
  1. SYMBICORT PMDI [Suspect]
     Indication: CHRONIC OBSTRUCTIVE PULMONARY DISEASE
     Dosage: 160/4.5 MCG, TWO PUFFS, EVERY 12 HOURS
     Route: 055
     Dates: start: 20120222

REACTIONS (5)
  - Dyspnoea [Unknown]
  - Productive cough [Unknown]
  - Sputum increased [Unknown]
  - Cough [Unknown]
  - Drug dose omission [Unknown]
